FAERS Safety Report 9322105 (Version 2)
Quarter: 2013Q2

REPORT INFORMATION
  Report Type: Spontaneous
  Country: US (occurrence: None)
  Receive Date: 20130528
  Receipt Date: 20130611
  Transmission Date: 20140414
  Serious: Yes (Hospitalization, Other)
  Sender: FDA-Public Use
  Company Number: US-ZYDUS-001180

PATIENT
  Age: 80 Year
  Sex: Female

DRUGS (1)
  1. AMIODARONE [Suspect]
     Indication: ATRIAL FIBRILLATION
     Dosage: 1.0DAYS

REACTIONS (5)
  - Electrocardiogram U-wave abnormality [None]
  - Electrocardiogram QT prolonged [None]
  - Dizziness [None]
  - Hypovolaemia [None]
  - Acute prerenal failure [None]
